FAERS Safety Report 9478508 (Version 1)
Quarter: 2013Q3

REPORT INFORMATION
  Report Type: Spontaneous
  Country: US (occurrence: US)
  Receive Date: 20130827
  Receipt Date: 20130827
  Transmission Date: 20140515
  Serious: No
  Sender: FDA-Public Use
  Company Number: US-ROXANE LABORATORIES, INC.-2013-RO-01438RO

PATIENT
  Sex: Female

DRUGS (1)
  1. EXEMESTANE [Suspect]

REACTIONS (3)
  - Local swelling [Unknown]
  - Pain in extremity [Unknown]
  - Arthralgia [Unknown]
